FAERS Safety Report 5029076-8 (Version None)
Quarter: 2006Q2

REPORT INFORMATION
  Report Type: 
  Country: None (occurrence: None)
  Receive Date: 20060501
  Receipt Date: 20060328
  Transmission Date: 20061013
  Serious: No
  Sender: FDA-Public Use
  Company Number: 200613007US

PATIENT
  Age: 61 Year
  Sex: Female

DRUGS (2)
  1. KETEK [Suspect]
     Indication: COUGH
     Dosage: 800 MG BID PO
     Route: 048
     Dates: start: 20060327
  2. QUETIAPINE FUMARATE (SEROQUEL) [Concomitant]

REACTIONS (3)
  - DIARRHOEA [None]
  - NAUSEA [None]
  - VOMITING [None]
